FAERS Safety Report 13262659 (Version 1)
Quarter: 2017Q1

REPORT INFORMATION
  Report Type: Spontaneous
  Country: US (occurrence: US)
  Receive Date: 20170223
  Receipt Date: 20170223
  Transmission Date: 20170428
  Serious: Yes (Hospitalization, Other)
  Sender: FDA-Public Use
  Company Number: US-ZYDUS-013926

PATIENT
  Age: 38 Year
  Sex: Female

DRUGS (2)
  1. WARFARIN [Suspect]
     Active Substance: WARFARIN
     Indication: PULMONARY EMBOLISM
     Route: 065
  2. HEPARIN [Suspect]
     Active Substance: HEPARIN SODIUM
     Indication: PULMONARY EMBOLISM
     Route: 065

REACTIONS (10)
  - Clonus [Recovering/Resolving]
  - Spinal subdural haematoma [Recovering/Resolving]
  - Tachycardia [Recovered/Resolved]
  - Spinal epidural haematoma [Recovering/Resolving]
  - Atelectasis [Recovered/Resolved]
  - International normalised ratio increased [Unknown]
  - Back pain [Recovering/Resolving]
  - Neck pain [Recovered/Resolved]
  - Coagulopathy [Unknown]
  - Dyspnoea [Recovered/Resolved]
